FAERS Safety Report 22861953 (Version 5)
Quarter: 2024Q4

REPORT INFORMATION
  Report Type: Spontaneous
  Country: US (occurrence: US)
  Receive Date: 20230824
  Receipt Date: 20241114
  Transmission Date: 20250115
  Serious: No
  Sender: PFIZER
  Company Number: US-PFIZER INC-PV202300143697

PATIENT
  Age: 59 Year
  Sex: Male
  Weight: 127.3 kg

DRUGS (3)
  1. DOFETILIDE [Suspect]
     Active Substance: DOFETILIDE
     Indication: Heart rate irregular
     Dosage: 500 UG, 2X/DAY, TAKE 1 CAPSULE BY MOUTH TWICE A DAY
     Route: 048
  2. TIKOSYN [Suspect]
     Active Substance: DOFETILIDE
     Indication: Heart rate irregular
     Dosage: 500 UG, 2X/DAY, 500 MCG, 1 CAPSULE EVERY 12 HOURS
     Route: 048
     Dates: start: 20230808
  3. TIKOSYN [Suspect]
     Active Substance: DOFETILIDE
     Dosage: 500 UG, 2X/DAY, BY MOUTH EVERY 12 HOURS.
     Route: 048
     Dates: start: 20241108

REACTIONS (2)
  - Drug intolerance [Unknown]
  - Palpitations [Unknown]
